FAERS Safety Report 10221142 (Version 1)
Quarter: 2014Q2

REPORT INFORMATION
  Report Type: Spontaneous
  Country: US (occurrence: None)
  Receive Date: 20140604
  Receipt Date: 20140604
  Transmission Date: 20141212
  Serious: Yes (Other)
  Sender: FDA-Public Use
  Company Number: 2014AP003167

PATIENT
  Age: 7 Month
  Sex: 0

DRUGS (1)
  1. TRANEXAMIC ACID [Suspect]
     Indication: CRANIOSYNOSTOSIS

REACTIONS (3)
  - Cerebral artery thrombosis [None]
  - Asthenia [None]
  - Cerebral hypoperfusion [None]
